FAERS Safety Report 11359417 (Version 1)
Quarter: 2015Q3

REPORT INFORMATION
  Report Type: Report from Study
  Country: US (occurrence: US)
  Receive Date: 20150807
  Receipt Date: 20150807
  Transmission Date: 20151125
  Serious: Yes (Other)
  Sender: FDA-Public Use
  Company Number: US-ABBVIE-15P-163-1441072-00

PATIENT
  Age: 66 Year
  Sex: Male

DRUGS (2)
  1. 6-MP [Concomitant]
     Active Substance: MERCAPTOPURINE
     Indication: PRODUCT USED FOR UNKNOWN INDICATION
  2. HUMIRA [Suspect]
     Active Substance: ADALIMUMAB
     Indication: COLITIS ULCERATIVE
     Route: 058

REACTIONS (8)
  - Goitre [Unknown]
  - Lymphadenopathy [Unknown]
  - Neck pain [Unknown]
  - Malignant melanoma stage III [Recovered/Resolved with Sequelae]
  - Pain in jaw [Unknown]
  - Jaw operation [Unknown]
  - Drug ineffective [Not Recovered/Not Resolved]
  - Ear pain [Unknown]

NARRATIVE: CASE EVENT DATE: 201411
